FAERS Safety Report 14144113 (Version 2)
Quarter: 2017Q4

REPORT INFORMATION
  Report Type: Spontaneous
  Country: JP (occurrence: JP)
  Receive Date: 20171031
  Receipt Date: 20171102
  Transmission Date: 20180321
  Serious: Yes (Death, Life-Threatening, Hospitalization, Other)
  Sender: FDA-Public Use
  Company Number: JP-NAPPMUNDI-GBR-2017-0050148

PATIENT

DRUGS (7)
  1. ZYPREXA [Concomitant]
     Active Substance: OLANZAPINE
     Indication: ABDOMINAL DISCOMFORT
  2. OXINORM (OXYCODONE HYDROCHLORIDE) [Suspect]
     Active Substance: OXYCODONE HYDROCHLORIDE
     Indication: CANCER PAIN
     Dosage: 10 MG, DAILY, PRN
     Route: 048
     Dates: start: 20170626, end: 20170827
  3. ZYPREXA [Concomitant]
     Active Substance: OLANZAPINE
     Indication: SCHIZOPHRENIA
     Dosage: 2.5 MG, DAILY
     Route: 048
     Dates: start: 20170626, end: 20170705
  4. DAIOKANZOTO [Concomitant]
     Active Substance: LICORICE ROOT EXTRACT\RHUBARB
     Indication: CONSTIPATION
     Dosage: 2 DF, DAILY
     Route: 048
     Dates: start: 20170620, end: 20170705
  5. DOMPERIDONE [Concomitant]
     Active Substance: DOMPERIDONE
     Indication: ABDOMINAL DISCOMFORT
     Dosage: UNK
     Route: 048
     Dates: start: 20170425, end: 20170709
  6. FENTOS [Concomitant]
     Active Substance: FENTANYL
     Indication: CANCER PAIN
     Dosage: 5 MG, DAILY
     Route: 062
     Dates: start: 20170620, end: 20170731
  7. MAGNESIUM OXIDE. [Concomitant]
     Active Substance: MAGNESIUM OXIDE
     Indication: CONSTIPATION
     Dosage: 1500 MG, DAILY
     Route: 048
     Dates: start: 20170626, end: 20170827

REACTIONS (5)
  - Ovarian cancer recurrent [Fatal]
  - Diarrhoea [Recovered/Resolved]
  - Constipation [Unknown]
  - Haematochezia [Recovering/Resolving]
  - Abdominal pain [Recovering/Resolving]

NARRATIVE: CASE EVENT DATE: 20170705
